FAERS Safety Report 23762223 (Version 1)
Quarter: 2024Q2

REPORT INFORMATION
  Report Type: Spontaneous
  Country: CN (occurrence: CN)
  Receive Date: 20240419
  Receipt Date: 20240419
  Transmission Date: 20240716
  Serious: No
  Sender: FDA-Public Use
  Company Number: CN-009507513-2404CHN006331

PATIENT
  Age: 92 Year
  Sex: Male
  Weight: 53.7 kg

DRUGS (1)
  1. LAGEVRIO [Suspect]
     Active Substance: MOLNUPIRAVIR
     Indication: COVID-19 treatment
     Dosage: 0.8 G, Q12H
     Route: 048
     Dates: start: 20240220, end: 20240226

REACTIONS (2)
  - Drug eruption [Recovering/Resolving]
  - Incorrect product administration duration [Unknown]

NARRATIVE: CASE EVENT DATE: 20240225
